FAERS Safety Report 19292513 (Version 1)
Quarter: 2021Q2

REPORT INFORMATION
  Report Type: Spontaneous
  Country: GB (occurrence: GB)
  Receive Date: 20210524
  Receipt Date: 20210524
  Transmission Date: 20210717
  Serious: Yes (Other)
  Sender: FDA-Public Use
  Company Number: GB-ROCHE-2832137

PATIENT
  Age: 57 Year
  Sex: Male
  Weight: 106 kg

DRUGS (21)
  1. LINEZOLID. [Suspect]
     Active Substance: LINEZOLID
     Route: 065
     Dates: start: 20210215, end: 20210215
  2. COLISTIN [Concomitant]
     Active Substance: COLISTIN
     Route: 042
  3. COLOMYCIN [Concomitant]
     Dates: start: 20210215
  4. MEROPENEM. [Concomitant]
     Active Substance: MEROPENEM
  5. TIGECYCLINE. [Suspect]
     Active Substance: TIGECYCLINE
     Indication: PRODUCT USED FOR UNKNOWN INDICATION
     Route: 065
  6. AMIODARONE [Concomitant]
     Active Substance: AMIODARONE
     Indication: BRONCHOSPASM
  7. PENTAMIDINE [Concomitant]
     Active Substance: PENTAMIDINE
  8. COLOMYCIN [Concomitant]
     Route: 042
     Dates: start: 20210224
  9. FOSFOMYCIN [Concomitant]
     Active Substance: FOSFOMYCIN
  10. METOPROLOL. [Concomitant]
     Active Substance: METOPROLOL
  11. VANCOMYCIN [Concomitant]
     Active Substance: VANCOMYCIN
     Dates: start: 20210131
  12. LINEZOLID. [Suspect]
     Active Substance: LINEZOLID
     Indication: PRODUCT USED FOR UNKNOWN INDICATION
     Route: 065
     Dates: start: 20210202, end: 20210210
  13. AMIKACIN. [Concomitant]
     Active Substance: AMIKACIN
     Indication: PYREXIA
     Dates: start: 20210210
  14. COLISTIN [Concomitant]
     Active Substance: COLISTIN
     Dates: start: 20210219
  15. FLUTICASONE FUROATE [Concomitant]
     Active Substance: FLUTICASONE FUROATE
  16. LINEZOLID. [Suspect]
     Active Substance: LINEZOLID
     Route: 065
     Dates: start: 20210224, end: 20210301
  17. BISOPROLOL [Concomitant]
     Active Substance: BISOPROLOL
     Indication: ATRIAL FIBRILLATION
  18. FOSTAIR [Concomitant]
     Active Substance: BECLOMETHASONE\FORMOTEROL
     Indication: ASTHMA
  19. TOCILIZUMAB. [Suspect]
     Active Substance: TOCILIZUMAB
     Indication: CORONAVIRUS INFECTION
     Route: 065
     Dates: start: 20210121, end: 20210122
  20. SALBUTAMOL [Concomitant]
     Active Substance: ALBUTEROL
     Indication: ASTHMA
  21. CIPROFLOXACIN. [Concomitant]
     Active Substance: CIPROFLOXACIN
     Dates: start: 20210131

REACTIONS (7)
  - Bronchospasm [Recovered/Resolved]
  - Endocarditis [Recovered/Resolved]
  - Purpura non-thrombocytopenic [Recovered/Resolved]
  - Sepsis [Recovered/Resolved]
  - Rash [Recovered/Resolved]
  - Lip swelling [Recovered/Resolved]
  - Pneumothorax [Recovered/Resolved]

NARRATIVE: CASE EVENT DATE: 20210131
